FAERS Safety Report 13384157 (Version 1)
Quarter: 2017Q1

REPORT INFORMATION
  Report Type: Spontaneous
  Country: US (occurrence: US)
  Receive Date: 20170329
  Receipt Date: 20170329
  Transmission Date: 20170429
  Serious: Yes (Life-Threatening, Hospitalization)
  Sender: FDA-Public Use
  Company Number: None

PATIENT
  Age: 69 Year
  Sex: Male
  Weight: 69.85 kg

DRUGS (2)
  1. APIXABAN [Suspect]
     Active Substance: APIXABAN
     Indication: ATRIAL FIBRILLATION
     Route: 048
     Dates: start: 20170208, end: 20170312
  2. APIXABAN [Suspect]
     Active Substance: APIXABAN
     Indication: THROMBOSIS
     Route: 048
     Dates: start: 20170208, end: 20170312

REACTIONS (16)
  - Haemorrhagic stroke [None]
  - Pneumonia [None]
  - Asthenia [None]
  - Blood culture positive [None]
  - Mental status changes [None]
  - Cerebral haemorrhage [None]
  - Syncope [None]
  - Hypotension [None]
  - Fall [None]
  - Therapy cessation [None]
  - Facial paralysis [None]
  - Vomiting [None]
  - Blood lactic acid increased [None]
  - Dizziness [None]
  - Hemiparesis [None]
  - Cerebrovascular accident [None]

NARRATIVE: CASE EVENT DATE: 20170312
